FAERS Safety Report 24137631 (Version 1)
Quarter: 2024Q3

REPORT INFORMATION
  Report Type: Spontaneous
  Country: US (occurrence: US)
  Receive Date: 20240725
  Receipt Date: 20240725
  Transmission Date: 20241017
  Serious: Yes (Hospitalization, Other)
  Sender: DR REDDYS
  Company Number: US-DRL-USA-LIT/USA/24/0010385

PATIENT
  Age: 14 Year
  Sex: Male

DRUGS (4)
  1. MERCAPTOPURINE [Suspect]
     Active Substance: MERCAPTOPURINE
     Indication: B-cell type acute leukaemia
     Dosage: 60?MG/M2/DAY
     Route: 048
  2. MERCAPTOPURINE [Suspect]
     Active Substance: MERCAPTOPURINE
     Dosage: 25?MG/M2/DAY
     Route: 048
  3. METHOTREXATE [Suspect]
     Active Substance: METHOTREXATE
     Indication: B-cell type acute leukaemia
  4. VINCRISTINE [Suspect]
     Active Substance: VINCRISTINE
     Indication: B-cell type acute leukaemia

REACTIONS (8)
  - Myelosuppression [Recovered/Resolved]
  - Neutropenia [Recovered/Resolved]
  - Nausea [Recovered/Resolved]
  - Vomiting [Recovered/Resolved]
  - Cytopenia [Recovered/Resolved]
  - Venoocclusive liver disease [Recovered/Resolved]
  - Pancytopenia [Recovered/Resolved]
  - Hepatotoxicity [Recovered/Resolved]
